FAERS Safety Report 17514469 (Version 2)
Quarter: 2020Q3

REPORT INFORMATION
  Report Type: Report from Study
  Country: None (occurrence: US)
  Receive Date: 20200307
  Receipt Date: 20200705
  Transmission Date: 20201102
  Serious: Yes (Other)
  Sender: FDA-Public Use
  Company Number: US-ABBVIE-20K-163-3304841-00

PATIENT
  Sex: Female
  Weight: 49.94 kg

DRUGS (1)
  1. HUMIRA [Suspect]
     Active Substance: ADALIMUMAB
     Indication: CROHN^S DISEASE
     Dosage: CITRATE FREE
     Route: 058

REACTIONS (8)
  - Procedural complication [Unknown]
  - Weight decreased [Not Recovered/Not Resolved]
  - Weight gain poor [Unknown]
  - Lung disorder [Unknown]
  - Anxiety [Unknown]
  - Vascular injury [Unknown]
  - Stomal hernia [Unknown]
  - Hallucination [Unknown]

NARRATIVE: CASE EVENT DATE: 2020
